FAERS Safety Report 25615371 (Version 1)
Quarter: 2025Q3

REPORT INFORMATION
  Report Type: Spontaneous
  Country: US (occurrence: US)
  Receive Date: 20250729
  Receipt Date: 20250729
  Transmission Date: 20251021
  Serious: No
  Sender: ABBVIE
  Company Number: US-ABBVIE-6381711

PATIENT
  Age: 61 Year
  Sex: Male
  Weight: 74.842 kg

DRUGS (5)
  1. VYALEV [Suspect]
     Active Substance: FOSCARBIDOPA\FOSLEVODOPA
     Indication: Parkinson^s disease
     Route: 058
     Dates: start: 20250710
  2. CLONAZEPAM [Concomitant]
     Active Substance: CLONAZEPAM
     Indication: Mental disorder
  3. NUPLAZID [Concomitant]
     Active Substance: PIMAVANSERIN TARTRATE
     Indication: Mental disorder
  4. TOPIRAMATE [Concomitant]
     Active Substance: TOPIRAMATE
     Indication: Mental disorder
  5. LEVOTHYROXINE [Concomitant]
     Active Substance: LEVOTHYROXINE
     Indication: Hypothyroidism

REACTIONS (3)
  - Infusion site erythema [Recovered/Resolved]
  - Wrong technique in device usage process [Not Recovered/Not Resolved]
  - Infusion site pain [Recovered/Resolved]

NARRATIVE: CASE EVENT DATE: 20250701
